FAERS Safety Report 4330976-2 (Version None)
Quarter: 2004Q1

REPORT INFORMATION
  Report Type: 
  Country: None (occurrence: None)
  Receive Date: 20040329
  Receipt Date: 20040309
  Transmission Date: 20041129
  Serious: No
  Sender: FDA-Public Use
  Company Number: 7623

PATIENT
  Age: 68 Year
  Sex: Male

DRUGS (3)
  1. LEUCOVORIN CALCIUM [Suspect]
     Indication: COLON CANCER
     Dosage: 75 MG PO
     Route: 048
     Dates: start: 20031110, end: 20040217
  2. TEGAFUR [Suspect]
     Indication: COLON CANCER
     Dosage: 600 MG PO
     Route: 048
     Dates: start: 20031110, end: 20040217
  3. URACIL [Suspect]

REACTIONS (3)
  - HAEMORRHAGE [None]
  - PAIN IN EXTREMITY [None]
  - PALMAR-PLANTAR ERYTHRODYSAESTHESIA SYNDROME [None]
